FAERS Safety Report 23918948 (Version 10)
Quarter: 2025Q2

REPORT INFORMATION
  Report Type: Report from Study
  Country: CN (occurrence: CN)
  Receive Date: 20240530
  Receipt Date: 20250519
  Transmission Date: 20250717
  Serious: Yes (Hospitalization, Other)
  Sender: ROCHE
  Company Number: CN-ROCHE-3571756

PATIENT
  Age: 56 Year
  Sex: Female
  Weight: 65 kg

DRUGS (30)
  1. POLATUZUMAB VEDOTIN [Suspect]
     Active Substance: POLATUZUMAB VEDOTIN
     Indication: Diffuse large B-cell lymphoma
     Route: 042
     Dates: start: 20240223, end: 20240223
  2. POLATUZUMAB VEDOTIN [Suspect]
     Active Substance: POLATUZUMAB VEDOTIN
     Route: 042
     Dates: start: 20240224
  3. POLATUZUMAB VEDOTIN [Suspect]
     Active Substance: POLATUZUMAB VEDOTIN
     Route: 042
     Dates: start: 20240606, end: 20240606
  4. GEMCITABINE [Suspect]
     Active Substance: GEMCITABINE
     Indication: Diffuse large B-cell lymphoma
     Route: 042
     Dates: start: 20240224, end: 20240224
  5. GEMCITABINE [Suspect]
     Active Substance: GEMCITABINE
     Route: 042
     Dates: start: 20240607, end: 20240607
  6. GEMCITABINE [Suspect]
     Active Substance: GEMCITABINE
     Route: 042
     Dates: start: 20240615, end: 20240615
  7. DOXORUBICIN [Suspect]
     Active Substance: DOXORUBICIN
     Indication: Diffuse large B-cell lymphoma
     Route: 042
     Dates: start: 20240224, end: 20240224
  8. VINORELBINE [Suspect]
     Active Substance: VINORELBINE TARTRATE
     Indication: Diffuse large B-cell lymphoma
     Route: 042
     Dates: start: 20240224, end: 20240224
  9. MITOXANTRONE [Suspect]
     Active Substance: MITOXANTRONE HYDROCHLORIDE
     Indication: Diffuse large B-cell lymphoma
     Route: 042
     Dates: end: 20240607
  10. TUCIDINOSTAT [Suspect]
     Active Substance: TUCIDINOSTAT
     Indication: Diffuse large B-cell lymphoma
     Route: 048
     Dates: start: 2024, end: 202405
  11. TUCIDINOSTAT [Suspect]
     Active Substance: TUCIDINOSTAT
     Route: 048
     Dates: start: 202402, end: 202403
  12. VINORELBINE TARTRATE [Suspect]
     Active Substance: VINORELBINE TARTRATE
     Indication: Diffuse large B-cell lymphoma
     Route: 042
     Dates: start: 20240615, end: 20240615
  13. VINORELBINE TARTRATE [Suspect]
     Active Substance: VINORELBINE TARTRATE
     Route: 042
     Dates: end: 20240607
  14. Bicyclol Tablets [Concomitant]
     Route: 048
     Dates: start: 20240304
  15. Tropisetron Injection [Concomitant]
     Route: 042
     Dates: start: 20240606, end: 20240607
  16. ESOMEPRAZOLE SODIUM [Concomitant]
     Active Substance: ESOMEPRAZOLE SODIUM
     Dates: start: 20240503, end: 20240520
  17. POSACONAZOLE [Concomitant]
     Active Substance: POSACONAZOLE
     Route: 048
     Dates: start: 20240406, end: 20240406
  18. POSACONAZOLE [Concomitant]
     Active Substance: POSACONAZOLE
     Route: 048
     Dates: start: 20240508, end: 20240520
  19. biapenem for injection [Concomitant]
     Route: 042
     Dates: start: 20240509, end: 20240517
  20. MONTMORILLONITE [Concomitant]
     Active Substance: MONTMORILLONITE
     Dates: start: 20240503
  21. PROMETHAZINE [Concomitant]
     Active Substance: PROMETHAZINE HYDROCHLORIDE
     Route: 030
     Dates: start: 20240606, end: 20240606
  22. LOXOPROFEN SODIUM [Concomitant]
     Active Substance: LOXOPROFEN SODIUM
     Dates: start: 20240229, end: 2024
  23. LOXOPROFEN SODIUM [Concomitant]
     Active Substance: LOXOPROFEN SODIUM
     Route: 048
     Dates: start: 20240606, end: 20240606
  24. DIPHENHYDRAMINE HYDROCHLORIDE [Concomitant]
     Active Substance: DIPHENHYDRAMINE HYDROCHLORIDE
     Route: 030
     Dates: start: 20240606, end: 20240606
  25. Glutathione for injection [Concomitant]
     Route: 042
     Dates: start: 20240607, end: 20240607
  26. SODIUM BICARBONATE [Concomitant]
     Active Substance: SODIUM BICARBONATE
     Route: 042
     Dates: start: 20240404, end: 20240406
  27. SODIUM BICARBONATE [Concomitant]
     Active Substance: SODIUM BICARBONATE
     Dosage: GARGLE
     Route: 050
     Dates: start: 20240408, end: 20240408
  28. Human granulocyte colony-stimulating factor injection [Concomitant]
     Route: 058
     Dates: start: 20240509, end: 20240517
  29. Human granulocyte colony-stimulating factor injection [Concomitant]
     Route: 058
     Dates: start: 20240518, end: 20240520
  30. Human granulocyte colony-stimulating factor injection [Concomitant]
     Route: 058
     Dates: start: 20240615, end: 20240627

REACTIONS (9)
  - White blood cell count decreased [Recovered/Resolved]
  - Neutrophil count decreased [Recovered/Resolved]
  - Hepatic failure [Not Recovered/Not Resolved]
  - Pneumonia [Recovered/Resolved]
  - Myelosuppression [Recovered/Resolved]
  - Thrombocytopenia [Recovered/Resolved]
  - Pyrexia [Recovered/Resolved]
  - Anaemia [Recovered/Resolved]
  - Pneumonia [Recovered/Resolved]

NARRATIVE: CASE EVENT DATE: 20240226
